FAERS Safety Report 5366091-9 (Version None)
Quarter: 2007Q2

REPORT INFORMATION
  Report Type: 
  Country: None (occurrence: None)
  Receive Date: 20070611
  Receipt Date: 20061214
  Transmission Date: 20071010
  Serious: Yes (Other)
  Sender: FDA-Public Use
  Company Number: USA-2005-0023187

PATIENT
  Sex: Male
  Weight: 97.5 kg

DRUGS (1)
  1. OXYCONTIN [Suspect]
     Indication: PAIN
     Dates: start: 20000330, end: 20050101

REACTIONS (9)
  - ANXIETY [None]
  - DELUSIONAL DISORDER, UNSPECIFIED TYPE [None]
  - DENTAL CARIES [None]
  - DEPRESSION [None]
  - DRUG DEPENDENCE [None]
  - DRUG WITHDRAWAL SYNDROME [None]
  - OBSESSIVE-COMPULSIVE DISORDER [None]
  - PAIN [None]
  - PARANOIA [None]
